FAERS Safety Report 11450496 (Version 1)
Quarter: 2015Q3

REPORT INFORMATION
  Report Type: Spontaneous
  Country: US (occurrence: US)
  Receive Date: 20150903
  Receipt Date: 20150903
  Transmission Date: 20151125
  Serious: No
  Sender: FDA-Public Use
  Company Number: US-ROCHE-1069469

PATIENT
  Sex: Male

DRUGS (3)
  1. PEGASYS [Suspect]
     Active Substance: PEGINTERFERON ALFA-2A
     Indication: HEPATITIS C
     Dosage: 24 WEEK COURSE
     Route: 065
     Dates: start: 20120413
  2. IBUPROFEN. [Concomitant]
     Active Substance: IBUPROFEN
     Route: 065
  3. COPEGUS [Suspect]
     Active Substance: RIBAVIRIN
     Indication: HEPATITIS C
     Dosage: DIVIDED DOSE. 24 WEEK COURSE
     Route: 065
     Dates: start: 20120413

REACTIONS (4)
  - Constipation [Unknown]
  - Abdominal pain [Unknown]
  - Nausea [Recovered/Resolved]
  - Decreased appetite [Unknown]
